FAERS Safety Report 8488522-8 (Version None)
Quarter: 2012Q3

REPORT INFORMATION
  Report Type: 
  Country: None (occurrence: None)
  Receive Date: 20120705
  Receipt Date: 20120626
  Transmission Date: 20120928
  Serious: Yes (Hospitalization)
  Sender: FDA-Public Use
  Company Number: US-B.I. PHARMACEUTICALS,INC./RIDGEFIELD-2012-BP-14537BP

PATIENT
  Sex: Female
  Weight: 83 kg

DRUGS (15)
  1. LORAZEPAM [Concomitant]
     Dosage: 2 MG
     Route: 048
  2. TIKOSYN [Concomitant]
     Indication: CARDIAC DISORDER
     Dosage: 500 MCG
     Route: 048
     Dates: start: 20120321
  3. FUROSEMIDE [Concomitant]
     Indication: BLOOD PRESSURE
     Dosage: 20 MG
     Route: 048
  4. BIFOPROLOL [Concomitant]
     Dosage: 10 MG
     Route: 048
     Dates: start: 20120301
  5. LOSARTAN POTASSIUM [Concomitant]
     Dosage: 100 MG
     Route: 048
     Dates: start: 20120301
  6. FLEXOR PATCH [Concomitant]
     Indication: ARTHRALGIA
     Route: 061
     Dates: start: 20120612
  7. ASPIRIN [Concomitant]
     Indication: CARDIAC DISORDER
     Dosage: 81 MG
     Route: 048
  8. PRILOSEC [Concomitant]
     Indication: GASTROOESOPHAGEAL REFLUX DISEASE
     Dosage: 20 MG
     Dates: start: 20110201
  9. CARTIA XT [Concomitant]
     Dosage: 240 MG
     Route: 048
  10. ZETIA [Concomitant]
     Dosage: 10 MG
  11. PRADAXA [Suspect]
     Indication: ATRIAL FIBRILLATION
     Dosage: 300 MG
     Route: 048
     Dates: start: 20120301
  12. SYNTHROID [Concomitant]
     Indication: THYROID DISORDER
     Route: 048
     Dates: start: 19970101
  13. FOLIC ACID [Concomitant]
  14. VITAMIN TAB [Concomitant]
  15. ETODOLAC [Concomitant]
     Indication: ARTHRALGIA
     Dosage: 800 MG
     Route: 048
     Dates: start: 20120301

REACTIONS (7)
  - DYSPNOEA [None]
  - CHEMICAL POISONING [None]
  - HEART RATE INCREASED [None]
  - PRODUCT QUALITY ISSUE [None]
  - HYPERTENSION [None]
  - PNEUMONIA [None]
  - CHRONIC OBSTRUCTIVE PULMONARY DISEASE [None]
